FAERS Safety Report 8978288 (Version 1)
Quarter: 2012Q4

REPORT INFORMATION
  Report Type: 
  Country: GB (occurrence: GB)
  Receive Date: 20121221
  Receipt Date: 20121221
  Transmission Date: 20130627
  Serious: Yes (Other)
  Sender: FDA-Public Use
  Company Number: GB-MERCK-1212GBR008028

PATIENT
  Age: 60 Year
  Sex: Female
  Weight: 91 kg

DRUGS (16)
  1. SYCREST [Suspect]
     Route: 048
  2. EDRONAX [Suspect]
     Indication: BIPOLAR DISORDER
     Dosage: 8 mg, bid
     Route: 048
     Dates: start: 201203, end: 2012
  3. EDRONAX [Suspect]
     Dosage: 12 mg, UNK
     Route: 048
     Dates: start: 2012
  4. ASPIRIN [Concomitant]
     Dosage: 75 mg, qd
     Route: 048
  5. BISOPROLOL [Concomitant]
     Dosage: 2.5 mg, qd
     Route: 048
  6. FUROSEMIDE [Concomitant]
     Dosage: 40 mg, bid
     Route: 048
  7. GLICLAZIDE [Concomitant]
     Dosage: 60 mg, qd
     Route: 048
  8. LAMOTRIGINE [Concomitant]
     Dosage: 150 mg, bid
  9. METFORMIN [Concomitant]
     Dosage: 1000 mg, bid
     Route: 048
  10. NOVOMIX [Concomitant]
  11. OMEPRAZOLE [Concomitant]
     Dosage: 20 mg, qd
     Route: 048
  12. PERINDOPRIL ERBUMINE [Concomitant]
     Dosage: 4 mg, qd
     Route: 048
  13. SIMVASTATIN [Concomitant]
     Dosage: 40 mg, qpm
     Route: 048
  14. SPIRONOLACTONE [Concomitant]
     Dosage: 25 mg, qod
     Route: 048
  15. TOLTERODINE [Concomitant]
     Dosage: 4 mg, qd
     Route: 048
  16. ZOPICLONE [Concomitant]
     Dosage: 7.5 mg, prn

REACTIONS (5)
  - Hypomania [Not Recovered/Not Resolved]
  - Malaise [Not Recovered/Not Resolved]
  - Drug interaction [Unknown]
  - Off label use [Not Recovered/Not Resolved]
  - Drug ineffective [Unknown]
